FAERS Safety Report 23845893 (Version 1)
Quarter: 2024Q2

REPORT INFORMATION
  Report Type: Spontaneous
  Country: US (occurrence: US)
  Receive Date: 20240512
  Receipt Date: 20240512
  Transmission Date: 20240715
  Serious: No
  Sender: FDA-Public Use
  Company Number: US-CIPLA LTD.-2023US07947

PATIENT

DRUGS (4)
  1. ALBUTEROL [Suspect]
     Active Substance: ALBUTEROL
     Indication: Upper respiratory tract infection
     Dosage: 180 MICROGRAM, QD (2 PUFFS)
     Route: 065
     Dates: start: 20231206
  2. ALBUTEROL [Suspect]
     Active Substance: ALBUTEROL
     Indication: Cough
  3. ALBUTEROL [Suspect]
     Active Substance: ALBUTEROL
     Indication: Bronchospasm
  4. BENZONATATE [Concomitant]
     Active Substance: BENZONATATE
     Indication: Cough
     Dosage: UNK (100MG/1-2 CAPSULE EVERY 8 HOURS)
     Route: 048
     Dates: start: 20231206

REACTIONS (3)
  - Eye irritation [Not Recovered/Not Resolved]
  - Ocular hyperaemia [Not Recovered/Not Resolved]
  - Off label use [Unknown]

NARRATIVE: CASE EVENT DATE: 20231206
